FAERS Safety Report 5642547-6 (Version None)
Quarter: 2008Q1

REPORT INFORMATION
  Report Type: 
  Country: None (occurrence: None)
  Receive Date: 20080226
  Receipt Date: 20080211
  Transmission Date: 20080703
  Serious: Yes (Other)
  Sender: FDA-Public Use
  Company Number: 230005M08FRA

PATIENT
  Age: 37 Year
  Sex: Female
  Weight: 60 kg

DRUGS (2)
  1. REBIF [Suspect]
     Indication: MULTIPLE SCLEROSIS
     Dosage: 3 IN 1 WEEKS
     Dates: start: 20080101, end: 20080101
  2. LAMOTRIGINE [Suspect]
     Indication: BACK PAIN
     Dates: start: 20080101

REACTIONS (3)
  - INJECTION SITE NECROSIS [None]
  - INJECTION SITE VESICLES [None]
  - STEVENS-JOHNSON SYNDROME [None]
